FAERS Safety Report 16420266 (Version 2)
Quarter: 2019Q3

REPORT INFORMATION
  Report Type: Spontaneous
  Country: US (occurrence: US)
  Receive Date: 20190612
  Receipt Date: 20190702
  Transmission Date: 20191004
  Serious: No
  Sender: FDA-Public Use
  Company Number: US-PFIZER INC-2019250662

PATIENT
  Age: 62 Year

DRUGS (8)
  1. MINOCYCLINE [Suspect]
     Active Substance: MINOCYCLINE HYDROCHLORIDE
     Dosage: UNK
  2. TRAMADOL HCL [Suspect]
     Active Substance: TRAMADOL HYDROCHLORIDE
     Dosage: UNK
  3. DAPTOMYCIN. [Suspect]
     Active Substance: DAPTOMYCIN
     Dosage: UNK
  4. SULFAMETHOXAZOLE [Suspect]
     Active Substance: SULFAMETHOXAZOLE
  5. SULFAMETHOXAZOLE/TRIMETHOPRIM [Suspect]
     Active Substance: SULFAMETHOXAZOLE\TRIMETHOPRIM
     Dosage: UNK
  6. BACTRIM [Suspect]
     Active Substance: SULFAMETHOXAZOLE\TRIMETHOPRIM
     Dosage: UNK
  7. LEVOFLOXACIN. [Suspect]
     Active Substance: LEVOFLOXACIN
     Dosage: UNK
  8. LEVAQUIN [Suspect]
     Active Substance: LEVOFLOXACIN
     Dosage: UNK

REACTIONS (1)
  - Drug hypersensitivity [Unknown]
